FAERS Safety Report 22311979 (Version 3)
Quarter: 2024Q2

REPORT INFORMATION
  Report Type: Other
  Country: EG (occurrence: None)
  Receive Date: 20230512
  Receipt Date: 20240603
  Transmission Date: 20240716
  Serious: Yes (Hospitalization)
  Sender: FDA-Public Use
  Company Number: EG-ROCHE-3099092

PATIENT
  Age: 31 Year
  Sex: Male
  Weight: 60 kg

DRUGS (1)
  1. OCREVUS [Suspect]
     Active Substance: OCRELIZUMAB
     Indication: Multiple sclerosis
     Dosage: ONGOING
     Route: 042
     Dates: start: 20220419

REACTIONS (4)
  - Musculoskeletal pain [Not Recovered/Not Resolved]
  - Multiple sclerosis [Not Recovered/Not Resolved]
  - Weight decreased [Unknown]
  - Drug ineffective [Unknown]

NARRATIVE: CASE EVENT DATE: 20220419
